FAERS Safety Report 20085589 (Version 1)
Quarter: 2021Q4

REPORT INFORMATION
  Report Type: Spontaneous
  Country: NL (occurrence: NL)
  Receive Date: 20211118
  Receipt Date: 20211118
  Transmission Date: 20220304
  Serious: Yes (Other)
  Sender: FDA-Public Use
  Company Number: NL-PFIZER INC-202101075439

PATIENT
  Sex: Male
  Weight: 5.1 kg

DRUGS (2)
  1. VORICONAZOLE [Suspect]
     Active Substance: VORICONAZOLE
     Indication: Fungal infection
     Dosage: 35 MG/KG, 2X/DAY
     Route: 048
  2. VORICONAZOLE [Suspect]
     Active Substance: VORICONAZOLE
     Dosage: 70 MG/KG
     Route: 048

REACTIONS (2)
  - Hepatotoxicity [Recovered/Resolved]
  - Nephropathy toxic [Recovered/Resolved]
